FAERS Safety Report 9441083 (Version 2)
Quarter: 2013Q3

REPORT INFORMATION
  Report Type: Spontaneous
  Country: GB (occurrence: None)
  Receive Date: 20130801
  Receipt Date: 20130802
  Transmission Date: 20140515
  Serious: Yes (Hospitalization)
  Sender: FDA-Public Use
  Company Number: AUR-APL-2013-06234

PATIENT
  Age: 64 Year
  Sex: Female
  Weight: 75.7 kg

DRUGS (11)
  1. RAMIPRIL [Suspect]
     Indication: HYPERTENSION
     Dosage: (2.5 MG, 1 IN 1 D)
     Route: 048
     Dates: start: 20130609, end: 20130626
  2. CHLORHEXIDINE (CHLORHEXIDINE) [Concomitant]
  3. CLOTRIMAZOLE (CLOTRIMAZOLE) [Concomitant]
  4. DALTEPARIN (DALTEPARIN) [Concomitant]
  5. DOCUSATE (DOCUSATE) [Concomitant]
  6. MELATONIN (MELATONIN) [Concomitant]
  7. MORPHINE SULPHATE (MORPHINE SULFATE) [Concomitant]
  8. OMEPRAZOLE (OMEPRAZOLE) [Concomitant]
  9. PARACETAMOL (PARACETAMOL) [Concomitant]
  10. SENNA (SENNA ALEXANDRINA) [Concomitant]
  11. ZOPICLONE (ZOPICLONE) [Concomitant]

REACTIONS (4)
  - Blister [None]
  - Blister [None]
  - Rash pruritic [None]
  - Rash generalised [None]
